FAERS Safety Report 4833009-4 (Version None)
Quarter: 2005Q4

REPORT INFORMATION
  Report Type: 
  Country: None (occurrence: None)
  Receive Date: 20051121
  Receipt Date: 20050310
  Transmission Date: 20060501
  Serious: Yes (Hospitalization, Other)
  Sender: FDA-Public Use
  Company Number: US-MERCK-0503USA02235

PATIENT
  Age: 48 Year
  Sex: Female
  Weight: 84 kg

DRUGS (12)
  1. VIOXX [Suspect]
     Route: 048
     Dates: start: 19990609, end: 20020101
  2. PREVACID [Concomitant]
     Route: 048
  3. EFFEXOR XR [Concomitant]
     Route: 065
  4. BUMEX [Concomitant]
     Route: 065
  5. VICODIN [Concomitant]
     Route: 065
  6. KLONOPIN [Concomitant]
     Route: 065
  7. NEURONTIN [Concomitant]
     Route: 065
  8. COZAAR [Suspect]
     Route: 065
     Dates: start: 20011201
  9. HYZAAR [Concomitant]
     Route: 065
  10. AGGRENOX [Concomitant]
     Route: 065
  11. COMBIVENT [Concomitant]
     Route: 065
  12. TRICOR [Concomitant]
     Route: 065

REACTIONS (29)
  - ANAEMIA [None]
  - AZOTAEMIA [None]
  - BLOOD PRESSURE ORTHOSTATIC [None]
  - CAROTID ARTERY STENOSIS [None]
  - CEREBROVASCULAR ACCIDENT [None]
  - CHEST PAIN [None]
  - CONFUSIONAL STATE [None]
  - CORONARY ARTERY DISEASE [None]
  - DIARRHOEA [None]
  - DRUG INTERACTION [None]
  - DYSPNOEA [None]
  - FACIAL PALSY [None]
  - HYPERHIDROSIS [None]
  - HYPERLIPIDAEMIA [None]
  - HYPERTENSION [None]
  - HYPOTENSION [None]
  - HYPOVOLAEMIA [None]
  - INFLUENZA LIKE ILLNESS [None]
  - LOSS OF CONSCIOUSNESS [None]
  - NAUSEA [None]
  - PALPITATIONS [None]
  - RENAL FAILURE ACUTE [None]
  - STRESS INCONTINENCE [None]
  - SUBENDOCARDIAL ISCHAEMIA [None]
  - SYNCOPE [None]
  - TRANSIENT ISCHAEMIC ATTACK [None]
  - URINARY TRACT INFECTION [None]
  - VOMITING [None]
  - WEIGHT INCREASED [None]
